FAERS Safety Report 19949437 (Version 2)
Quarter: 2021Q4

REPORT INFORMATION
  Report Type: Other
  Country: CU (occurrence: CU)
  Receive Date: 20211013
  Receipt Date: 20211020
  Transmission Date: 20220303
  Serious: Yes (Death, Hospitalization, Disabling)
  Sender: FDA-Public Use
  Company Number: CU-ROCHE-2932691

PATIENT
  Age: 79 Year
  Sex: Female
  Weight: 55 kg

DRUGS (12)
  1. ALECTINIB [Suspect]
     Active Substance: ALECTINIB
     Indication: Non-small cell lung cancer
     Dosage: START DATE OF MOST RECENT DOSE OF STUDY DRUG RIOR TO AE: 06/OCT/2021
     Route: 048
     Dates: start: 20210818
  2. ENALAPRIL [Concomitant]
     Active Substance: ENALAPRIL
     Indication: Hypertension
     Route: 048
     Dates: start: 2009
  3. PENTOXIFYLLINE [Concomitant]
     Active Substance: PENTOXIFYLLINE
     Indication: Peripheral venous disease
     Dates: start: 2019
  4. CIPROFLOXACIN [Concomitant]
     Active Substance: CIPROFLOXACIN
  5. METRONIDAZOLE [Concomitant]
     Active Substance: METRONIDAZOLE
  6. NADROPARIN CALCIUM [Concomitant]
     Active Substance: NADROPARIN CALCIUM
     Dates: start: 20211007, end: 20211012
  7. MIDAZOLAM [Concomitant]
     Active Substance: MIDAZOLAM
     Dates: start: 20211008, end: 20211012
  8. DICLOFENAC [Concomitant]
     Active Substance: DICLOFENAC
     Dates: start: 20211007, end: 20211008
  9. FENTANYL [Concomitant]
     Active Substance: FENTANYL
     Dates: start: 20211008, end: 20211012
  10. NOREPINEPHRINE [Concomitant]
     Active Substance: NOREPINEPHRINE
     Dates: start: 20211008, end: 20211011
  11. RANITIDINE [Concomitant]
     Active Substance: RANITIDINE
     Dates: start: 20211010, end: 20211010
  12. FUROSEMIDE [Concomitant]
     Active Substance: FUROSEMIDE
     Dates: start: 20211010, end: 20211010

REACTIONS (1)
  - Intestinal obstruction [Fatal]

NARRATIVE: CASE EVENT DATE: 20211007
